FAERS Safety Report 9855156 (Version 1)
Quarter: 2013Q4

REPORT INFORMATION
  Report Type: Spontaneous
  Country: US (occurrence: None)
  Receive Date: 20131226
  Receipt Date: 20131226
  Transmission Date: 20140711
  Serious: Yes (Other)
  Sender: FDA-Public Use
  Company Number: PHEH2012US001167

PATIENT
  Age: 37 Year
  Sex: Female
  Weight: 106.1 kg

DRUGS (3)
  1. AFINITOR (RAD) TABLET, 10MG [Suspect]
     Indication: BREAST CANCER
     Route: 048
  2. AROMASIN (EXEMESTANE) [Concomitant]
  3. BACTRIM (SULFAMETHOXAZOLE, TRIMETHOPRIM) [Concomitant]

REACTIONS (1)
  - Cholecystitis infective [None]
